FAERS Safety Report 4768072-2 (Version None)
Quarter: 2005Q3

REPORT INFORMATION
  Report Type: 
  Country: None (occurrence: None)
  Receive Date: 20050906
  Receipt Date: 20050520
  Transmission Date: 20060218
  Serious: No
  Sender: FDA-Public Use
  Company Number: 2005-BP-08309BP

PATIENT
  Age: 58 Year
  Sex: Female

DRUGS (6)
  1. SPIRIVA [Suspect]
     Indication: CHRONIC OBSTRUCTIVE PULMONARY DISEASE
     Dosage: 18 MCG (18 MCG, QD) IH
     Route: 055
     Dates: start: 20041201
  2. SPIRIVA [Suspect]
  3. COMBIVENT (COMBIVENT/GFR/) [Concomitant]
  4. ADVAIR DISKUS 100/50 [Concomitant]
  5. THEOPHYLLINE [Concomitant]
  6. ALBUTEROL [Concomitant]

REACTIONS (1)
  - AGEUSIA [None]
